FAERS Safety Report 26211027 (Version 1)
Quarter: 2025Q4

REPORT INFORMATION
  Report Type: Report from Study
  Country: US (occurrence: US)
  Receive Date: 20251230
  Receipt Date: 20251230
  Transmission Date: 20260118
  Serious: Yes (Other)
  Sender: ABBVIE
  Company Number: US-JNJFOC-20251229614

PATIENT

DRUGS (1)
  1. IBRUTINIB [Suspect]
     Active Substance: IBRUTINIB
     Indication: Chronic lymphocytic leukaemia
     Route: 048

REACTIONS (16)
  - Dementia [Unknown]
  - Hypertension [Unknown]
  - Transitional cell carcinoma [Unknown]
  - Arthralgia [Unknown]
  - Colitis [Unknown]
  - Renal cell carcinoma recurrent [Unknown]
  - Syncope [Unknown]
  - Myelodysplastic syndrome [Unknown]
  - Gastric cancer [Unknown]
  - Ovarian cancer [Unknown]
  - Palpitations [Unknown]
  - Lung neoplasm malignant [Unknown]
  - Ventricular tachycardia [Unknown]
  - Pleural effusion [Unknown]
  - Atrial fibrillation [Unknown]
  - Pneumonitis [Unknown]
